FAERS Safety Report 12557458 (Version 1)
Quarter: 2016Q3

REPORT INFORMATION
  Report Type: Spontaneous
  Country: US (occurrence: US)
  Receive Date: 20160714
  Receipt Date: 20160714
  Transmission Date: 20161109
  Serious: Yes (Other)
  Sender: FDA-Public Use
  Company Number: US-MYLANLABS-2016M1028736

PATIENT

DRUGS (2)
  1. SOTALOL. [Suspect]
     Active Substance: SOTALOL
     Dosage: UNK
  2. ELIQUIS [Suspect]
     Active Substance: APIXABAN
     Dosage: UNK

REACTIONS (4)
  - Renal failure [Not Recovered/Not Resolved]
  - Cardiac pacemaker insertion [Recovered/Resolved]
  - Intentional overdose [Recovered/Resolved with Sequelae]
  - Haemorrhage [Unknown]

NARRATIVE: CASE EVENT DATE: 2016
